FAERS Safety Report 6014721-0 (Version None)
Quarter: 2008Q4

REPORT INFORMATION
  Report Type: 
  Country: None (occurrence: None)
  Receive Date: 20081219
  Receipt Date: 20081208
  Transmission Date: 20090506
  Serious: Yes (Hospitalization)
  Sender: FDA-Public Use
  Company Number: US-PFIZER INC-2008150490

PATIENT
  Sex: Female
  Weight: 94.331 kg

DRUGS (5)
  1. ADRIAMYCIN PFS [Suspect]
     Indication: BREAST CANCER
     Dosage: 116 MG, EVERY 3 WEEKS
     Dates: start: 20080910
  2. PROCRIT [Suspect]
     Indication: ANAEMIA OF MALIGNANT DISEASE
     Dosage: NO DRUG GIVEN
     Route: 065
  3. ARANESP [Suspect]
     Indication: ANAEMIA OF MALIGNANT DISEASE
     Dosage: 300 UG, EVERY 3 WEEKS
     Route: 058
     Dates: start: 20080910
  4. CYTOXAN [Suspect]
     Indication: BREAST CANCER
     Dosage: 1160 MG, EVERY 3 WEEKS
     Dates: start: 20080910
  5. TAXOL [Suspect]
     Indication: BREAST CANCER
     Dosage: 340 MG
     Route: 042
     Dates: start: 20081002

REACTIONS (4)
  - ANAEMIA [None]
  - PANCYTOPENIA [None]
  - PYREXIA [None]
  - SKIN ULCER [None]
